FAERS Safety Report 9204834 (Version 1)
Quarter: 2013Q1

REPORT INFORMATION
  Report Type: Spontaneous
  Country: US (occurrence: None)
  Receive Date: 20130329
  Receipt Date: 20130329
  Transmission Date: 20140127
  Serious: Yes (Life-Threatening, Hospitalization)
  Sender: FDA-Public Use
  Company Number: B0878259A

PATIENT
  Age: 14 Year
  Sex: Female

DRUGS (2)
  1. LAMOTRIGINE [Suspect]
     Indication: BIPOLAR DISORDER
  2. BUPROPION HYDROCHLORIDE [Suspect]
     Indication: BIPOLAR DISORDER

REACTIONS (24)
  - Drug reaction with eosinophilia and systemic symptoms [None]
  - Generalised erythema [None]
  - Rash [None]
  - Pyrexia [None]
  - Lymphadenopathy [None]
  - Pharyngitis [None]
  - Glossitis [None]
  - Transaminases increased [None]
  - Eosinophilia [None]
  - Renal failure acute [None]
  - Fluid overload [None]
  - Hepatitis [None]
  - Anaemia [None]
  - Pancreatitis [None]
  - Tubulointerstitial nephritis [None]
  - Respiratory distress [None]
  - Respiratory failure [None]
  - Cardiac arrest [None]
  - Torsade de pointes [None]
  - Myocarditis [None]
  - Thyroiditis [None]
  - Electrocardiogram QT prolonged [None]
  - Therapeutic response decreased [None]
  - Lymphadenitis [None]
